FAERS Safety Report 6979615-2 (Version None)
Quarter: 2010Q3

REPORT INFORMATION
  Report Type: 
  Country: None (occurrence: None)
  Receive Date: 20100910
  Receipt Date: 20100910
  Transmission Date: 20110219
  Serious: Yes (Hospitalization)
  Sender: FDA-Public Use
  Company Number: None

PATIENT
  Age: 53 Year
  Sex: Female
  Weight: 72 kg

DRUGS (1)
  1. SULFAMETHOXAZOLE AND TRIMETHOPRIM [Suspect]
     Indication: CELLULITIS
     Dosage: 1 TAB BID PO
     Route: 048
     Dates: start: 20100509, end: 20100516

REACTIONS (11)
  - BALANCE DISORDER [None]
  - C-REACTIVE PROTEIN INCREASED [None]
  - HEPATIC ENZYME ABNORMAL [None]
  - HYPOTENSION [None]
  - IMMUNE SYSTEM DISORDER [None]
  - INFLAMMATION [None]
  - INFLUENZA LIKE ILLNESS [None]
  - PYREXIA [None]
  - RASH GENERALISED [None]
  - RED BLOOD CELL SEDIMENTATION RATE INCREASED [None]
  - TACHYCARDIA [None]
